FAERS Safety Report 8117519-2 (Version None)
Quarter: 2012Q1

REPORT INFORMATION
  Report Type: 
  Country: None (occurrence: None)
  Receive Date: 20120207
  Receipt Date: 20120126
  Transmission Date: 20120608
  Serious: No
  Sender: FDA-Public Use
  Company Number: US-BIOGENIDEC-2011BI023824

PATIENT
  Sex: Male

DRUGS (2)
  1. TYSABRI [Suspect]
     Indication: MULTIPLE SCLEROSIS
     Route: 042
     Dates: start: 20110622
  2. AVONEX [Concomitant]
     Indication: MULTIPLE SCLEROSIS
     Route: 030

REACTIONS (13)
  - INSOMNIA [None]
  - DYSPHEMIA [None]
  - HEADACHE [None]
  - FATIGUE [None]
  - BINOCULAR EYE MOVEMENT DISORDER [None]
  - TEMPERATURE INTOLERANCE [None]
  - VISION BLURRED [None]
  - INFLUENZA LIKE ILLNESS [None]
  - PAIN IN EXTREMITY [None]
  - ABNORMAL SENSATION IN EYE [None]
  - MUSCLE SPASTICITY [None]
  - PAIN [None]
  - DRUG EFFECT DECREASED [None]
